FAERS Safety Report 24393523 (Version 1)
Quarter: 2024Q3

REPORT INFORMATION
  Report Type: Spontaneous
  Country: GB (occurrence: GB)
  Receive Date: 20240928
  Receipt Date: 20240928
  Transmission Date: 20241017
  Serious: Yes (Other)
  Sender: TEVA
  Company Number: GB-GLAXOSMITHKLINE-GB2024EME078743

PATIENT
  Age: 67 Year
  Sex: Female

DRUGS (3)
  1. CARBOPLATIN [Suspect]
     Active Substance: CARBOPLATIN
     Indication: Product used for unknown indication
     Dosage: UNK
     Route: 065
     Dates: start: 20240530
  2. DOSTARLIMAB [Suspect]
     Active Substance: DOSTARLIMAB
     Indication: Product used for unknown indication
     Dosage: Q21
     Route: 065
     Dates: start: 20240530
  3. PACLITAXEL [Suspect]
     Active Substance: PACLITAXEL
     Indication: Product used for unknown indication
     Dosage: UNK DOSE REDUCED BY 25%
     Route: 065
     Dates: start: 20240530

REACTIONS (5)
  - Neuropathy peripheral [Unknown]
  - Dry skin [Unknown]
  - Fatigue [Unknown]
  - Pruritus [Unknown]
  - Cervix carcinoma stage III [Unknown]
